FAERS Safety Report 8519566-5 (Version None)
Quarter: 2012Q3

REPORT INFORMATION
  Report Type: 
  Country: None (occurrence: None)
  Receive Date: 20120718
  Receipt Date: 20120713
  Transmission Date: 20120928
  Serious: No
  Sender: FDA-Public Use
  Company Number: US-009507513-1207USA004305

PATIENT

DRUGS (3)
  1. VICTRELIS [Suspect]
     Indication: HEPATITIS C
     Dosage: 800 MG, Q8H
     Route: 048
     Dates: start: 20111101
  2. REBETOL [Suspect]
     Indication: HEPATITIS C
  3. PEGASYS [Suspect]
     Indication: HEPATITIS C

REACTIONS (2)
  - SKIN IRRITATION [None]
  - FATIGUE [None]
